FAERS Safety Report 12705222 (Version 1)
Quarter: 2016Q3

REPORT INFORMATION
  Report Type: Spontaneous
  Country: US (occurrence: None)
  Receive Date: 20160831
  Receipt Date: 20160831
  Transmission Date: 20161109
  Serious: Yes (Hospitalization)
  Sender: FDA-Public Use
  Company Number: None

PATIENT
  Age: 68 Year
  Sex: Male
  Weight: 66.6 kg

DRUGS (2)
  1. PACLITAXEL PROTEIN-BOUND PARTICLES (ALBUMIN-BOUND) [Suspect]
     Active Substance: PACLITAXEL
     Dates: end: 20160712
  2. GEMCITABINE HYDROCHLORIDE. [Suspect]
     Active Substance: GEMCITABINE HYDROCHLORIDE
     Dates: end: 20160712

REACTIONS (6)
  - Asthenia [None]
  - Hypoxia [None]
  - Pneumonia [None]
  - Pyrexia [None]
  - Sepsis [None]
  - Dyspnoea [None]

NARRATIVE: CASE EVENT DATE: 20160720
